FAERS Safety Report 15824894 (Version 1)
Quarter: 2019Q1

REPORT INFORMATION
  Report Type: Spontaneous
  Country: US (occurrence: US)
  Receive Date: 20190114
  Receipt Date: 20190114
  Transmission Date: 20190417
  Serious: Yes (Death)
  Sender: FDA-Public Use
  Company Number: None

PATIENT
  Age: 60 Year
  Sex: Female

DRUGS (5)
  1. MEKINIST [Suspect]
     Active Substance: TRAMETINIB DIMETHYL SULFOXIDE
     Indication: RESPIRATORY DISORDER
     Route: 048
     Dates: start: 20181116
  2. MELOXICAM. [Concomitant]
     Active Substance: MELOXICAM
  3. LOSARTAN. [Concomitant]
     Active Substance: LOSARTAN
  4. TAFINLAR [Suspect]
     Active Substance: DABRAFENIB MESYLATE
     Indication: RESPIRATORY DISORDER
     Route: 048
     Dates: start: 20181116
  5. PANTOPRAZOLE [Concomitant]
     Active Substance: PANTOPRAZOLE

REACTIONS (1)
  - Death [None]
